FAERS Safety Report 10347160 (Version 1)
Quarter: 2014Q3

REPORT INFORMATION
  Report Type: Spontaneous
  Country: US (occurrence: US)
  Receive Date: 20140729
  Receipt Date: 20140729
  Transmission Date: 20150326
  Serious: Yes (Other)
  Sender: FDA-Public Use
  Company Number: US-AMGEN-USASP2014056512

PATIENT
  Age: 52 Year
  Sex: Male

DRUGS (2)
  1. NEUPOGEN [Suspect]
     Active Substance: FILGRASTIM
     Indication: PRODUCT USED FOR UNKNOWN INDICATION
     Dosage: 480 MCG, DAILY
     Route: 065
     Dates: start: 20140210
  2. ADVIL (MEFENAMIC ACID) [Concomitant]
     Active Substance: MEFENAMIC ACID
     Dosage: UNK

REACTIONS (4)
  - White blood cell count abnormal [Unknown]
  - No therapeutic response [Unknown]
  - Neutrophil count abnormal [Unknown]
  - Febrile neutropenia [Unknown]

NARRATIVE: CASE EVENT DATE: 20140313
